FAERS Safety Report 8722021 (Version 2)
Quarter: 2012Q4

REPORT INFORMATION
  Report Type: 
  Country: US (occurrence: US)
  Receive Date: 20120814
  Receipt Date: 20121109
  Transmission Date: 20130627
  Serious: Yes (Other)
  Sender: FDA-Public Use
  Company Number: US-ASTRAZENECA-2012SE55330

PATIENT
  Age: 19 Year
  Sex: Female
  Weight: 68.5 kg

DRUGS (7)
  1. SEROQUEL [Suspect]
     Indication: BIPOLAR DISORDER
     Route: 048
     Dates: start: 2003
  2. SEROQUEL [Suspect]
     Indication: ANXIETY
     Route: 048
     Dates: start: 2003
  3. SEROQUEL [Suspect]
     Indication: MOOD SWINGS
     Route: 048
     Dates: start: 2003
  4. SEROQUEL [Suspect]
     Indication: AFFECTIVE DISORDER
     Route: 048
     Dates: start: 2003
  5. ATENOLOL [Suspect]
     Indication: CARDIAC DISORDER
     Route: 048
  6. ALPRAZOLAM [Concomitant]
     Indication: ANXIETY
     Route: 048
  7. MELATONIN [Concomitant]
     Indication: SLEEP DISORDER
     Dosage: PRN
     Route: 048

REACTIONS (9)
  - Suicidal ideation [Unknown]
  - Arrhythmia [Unknown]
  - Drug dependence [Unknown]
  - Hyperhidrosis [Unknown]
  - Thinking abnormal [Unknown]
  - Crying [Unknown]
  - Tremor [Unknown]
  - Drug withdrawal syndrome [Unknown]
  - Intentional drug misuse [Unknown]
